FAERS Safety Report 7901525 (Version 2)
Quarter: 2013Q4

REPORT INFORMATION
  Report Type: Spontaneous
  Country: US (occurrence: US)
  Receive Date: 20110415
  Receipt Date: 20131209
  Transmission Date: 20140711
  Serious: Yes (Other)
  Sender: FDA-Public Use
  Company Number: US-BAYER-2011-031946

PATIENT
  Age: 26 Year
  Sex: Female

DRUGS (17)
  1. YASMIN [Suspect]
     Indication: PRODUCT USED FOR UNKNOWN INDICATION
     Dosage: UNK
     Dates: start: 200912
  2. YAZ [Suspect]
  3. ONDANSETRON [Concomitant]
  4. TEMAZEPAM [Concomitant]
  5. ESOMEPRAZOLE [Concomitant]
  6. ZOLPIDEM TARTRATE [Concomitant]
  7. SUCRALFATE [Concomitant]
  8. METHYLPREDNISOLONE [Concomitant]
  9. POLYETHYLENE GLYCOL [Concomitant]
  10. LOPERAMIDE HCL [Concomitant]
  11. DIPHENHYDRAMIN HCL [Concomitant]
  12. ACETAMINOPHEN [Concomitant]
  13. IBUPROFEN [Concomitant]
  14. MECLIZINE [Concomitant]
  15. NEXIUM [Concomitant]
  16. CARAFATE [Concomitant]
  17. RESTORIL [Concomitant]

REACTIONS (4)
  - Gallbladder injury [None]
  - Pain [None]
  - Injury [None]
  - Biliary dyskinesia [None]
